FAERS Safety Report 21556025 (Version 2)
Quarter: 2022Q4

REPORT INFORMATION
  Report Type: Spontaneous
  Country: US (occurrence: US)
  Receive Date: 20221104
  Receipt Date: 20221121
  Transmission Date: 20230112
  Serious: No
  Sender: FDA-Public Use
  Company Number: US-LUPIN PHARMACEUTICALS INC.-2022-12918

PATIENT

DRUGS (1)
  1. ALBUTEROL SULFATE [Suspect]
     Active Substance: ALBUTEROL SULFATE
     Indication: Chronic obstructive pulmonary disease
     Dosage: UNK UNK, PRN (2 PUFFS BY MOUTH 4 TO 6 HOURS AS NEEDED)
     Dates: start: 20221010, end: 20221022

REACTIONS (2)
  - Wrong technique in device usage process [Unknown]
  - No adverse event [Unknown]
